FAERS Safety Report 9360566 (Version 1)
Quarter: 2013Q2

REPORT INFORMATION
  Report Type: Spontaneous
  Country: US (occurrence: US)
  Receive Date: 20130621
  Receipt Date: 20130621
  Transmission Date: 20140414
  Serious: Yes (Other)
  Sender: FDA-Public Use
  Company Number: US-SHIRE-ALL1-2013-04092

PATIENT
  Age: 10 Year
  Sex: Male
  Weight: 27.21 kg

DRUGS (1)
  1. VYVANSE [Suspect]
     Indication: ATTENTION DEFICIT/HYPERACTIVITY DISORDER
     Dosage: UNK, 1X/DAY:QD
     Route: 048
     Dates: start: 201305, end: 201306

REACTIONS (3)
  - Depression [Not Recovered/Not Resolved]
  - Therapy cessation [Recovered/Resolved]
  - Disturbance in social behaviour [Recovered/Resolved]
